FAERS Safety Report 6405285-8 (Version None)
Quarter: 2009Q4

REPORT INFORMATION
  Report Type: 
  Country: None (occurrence: None)
  Receive Date: 20091019
  Receipt Date: 20091008
  Transmission Date: 20100525
  Serious: Yes (Other)
  Sender: FDA-Public Use
  Company Number: US-JNJFOC-20090805989

PATIENT
  Sex: Male
  Weight: 78.47 kg

DRUGS (3)
  1. REMICADE [Suspect]
     Route: 042
     Dates: start: 20080101, end: 20090801
  2. REMICADE [Suspect]
     Indication: ANKYLOSING SPONDYLITIS
     Route: 042
     Dates: start: 20080101, end: 20090801
  3. ANTIHYPERTENSIVE [Concomitant]

REACTIONS (1)
  - PROSTATITIS [None]
